FAERS Safety Report 11945379 (Version 3)
Quarter: 2017Q1

REPORT INFORMATION
  Report Type: Spontaneous
  Country: JP (occurrence: JP)
  Receive Date: 20160125
  Receipt Date: 20170131
  Transmission Date: 20170428
  Serious: Yes (Death)
  Sender: FDA-Public Use
  Company Number: JP-MALLINCKRODT-T201600190

PATIENT
  Age: 25 Year
  Sex: Female
  Weight: 58 kg

DRUGS (26)
  1. NOVAMIN [Concomitant]
     Active Substance: PROCHLORPERAZINE MALEATE
     Dosage: 15 MG
     Route: 048
     Dates: end: 20141228
  2. ALLEGRA [Concomitant]
     Active Substance: FEXOFENADINE HYDROCHLORIDE
     Dosage: 120 MG
     Route: 048
     Dates: end: 20141228
  3. LEXAPRO [Concomitant]
     Active Substance: ESCITALOPRAM OXALATE
     Dosage: 10 MG
     Route: 048
     Dates: end: 20141228
  4. DECADRON [Concomitant]
     Active Substance: DEXAMETHASONE
     Dosage: 4 MG
     Route: 048
     Dates: start: 20141213, end: 20141228
  5. FUROSEMIDE. [Concomitant]
     Active Substance: FUROSEMIDE
     Dosage: 80 MG
     Route: 048
     Dates: end: 20141228
  6. WYPAX [Concomitant]
     Active Substance: LORAZEPAM
     Dosage: 0.5 MG
     Route: 048
     Dates: start: 20141204, end: 20141228
  7. METHADONE [Suspect]
     Active Substance: METHADONE HYDROCHLORIDE
     Indication: CANCER PAIN
     Dosage: 5 MG (15 MG DAILY DOSE)
     Route: 048
     Dates: start: 20141125, end: 20141127
  8. METHADONE [Suspect]
     Active Substance: METHADONE HYDROCHLORIDE
     Dosage: 10 MG (30 MG DAILY DOSE)
     Route: 048
     Dates: start: 20141127, end: 20141202
  9. OXIFAST [Concomitant]
     Active Substance: OXYCODONE
     Dosage: 120 MG
     Route: 051
     Dates: start: 20141121, end: 20141128
  10. MAGLAX [Concomitant]
     Active Substance: MAGNESIUM OXIDE
     Dosage: 1500 MG
     Route: 048
     Dates: end: 20141228
  11. LYRICA [Concomitant]
     Active Substance: PREGABALIN
     Dosage: 75 MG
     Route: 048
     Dates: end: 20141228
  12. NAUZELIN [Concomitant]
     Active Substance: DOMPERIDONE
     Dosage: 30 MG
     Route: 048
     Dates: end: 20141228
  13. METHADONE [Suspect]
     Active Substance: METHADONE HYDROCHLORIDE
     Dosage: 20 MG (60 MG DAILY DOSE)
     Route: 048
     Dates: start: 20141210, end: 20141228
  14. FENTANYL. [Concomitant]
     Active Substance: FENTANYL
     Indication: ANALGESIC THERAPY
     Dosage: 0.05 MG, PRN
     Route: 051
     Dates: start: 20141201
  15. TAKEPRON [Concomitant]
     Active Substance: LANSOPRAZOLE
     Dosage: 15 MG
     Route: 048
     Dates: end: 20141228
  16. METHYCOBAL [Concomitant]
     Active Substance: METHYLCOBALAMIN
     Dosage: 1500 MCG
     Route: 048
     Dates: end: 20141228
  17. AMOBAN [Concomitant]
     Active Substance: ZOPICLONE
     Dosage: 7.5 MG
     Route: 048
     Dates: end: 20141228
  18. SEROQUEL [Concomitant]
     Active Substance: QUETIAPINE FUMARATE
     Dosage: 50 MG
     Route: 048
     Dates: start: 20141204, end: 20141228
  19. METHADONE [Suspect]
     Active Substance: METHADONE HYDROCHLORIDE
     Dosage: 15 MG (45 MG DAILY DOSE)
     Route: 048
     Dates: start: 20141203, end: 20141209
  20. PANTETHINE [Concomitant]
     Active Substance: PANTETHINE
     Dosage: 600 MG
     Route: 048
     Dates: end: 20141228
  21. CALONAL [Concomitant]
     Active Substance: ACETAMINOPHEN
     Dosage: 1800 MG
     Route: 048
     Dates: end: 20141228
  22. LOXONIN [Concomitant]
     Active Substance: LOXOPROFEN SODIUM
     Dosage: 180 MG
     Route: 048
     Dates: end: 20141228
  23. ELENTAL [Concomitant]
     Active Substance: AMINO ACIDS\CARBOHYDRATES\MINERALS\SOYBEAN OIL\VITAMINS
     Dosage: 160 G
     Route: 048
     Dates: end: 20141228
  24. OXIFAST [Concomitant]
     Active Substance: OXYCODONE
     Indication: ANALGESIC THERAPY
     Dosage: 2.5-5 MG, PRN
     Route: 051
     Dates: start: 20141124
  25. SPIRONOLACTONE. [Concomitant]
     Active Substance: SPIRONOLACTONE
     Dosage: 50 MG
     Route: 048
     Dates: end: 20141228
  26. AMITIZA [Concomitant]
     Active Substance: LUBIPROSTONE
     Dosage: 48 MG
     Route: 048
     Dates: end: 20141228

REACTIONS (2)
  - Somnolence [Not Recovered/Not Resolved]
  - Cholangiocarcinoma [Fatal]

NARRATIVE: CASE EVENT DATE: 20141126
